FAERS Safety Report 7061284-7 (Version None)
Quarter: 2010Q4

REPORT INFORMATION
  Report Type: 
  Country: None (occurrence: None)
  Receive Date: 20101026
  Receipt Date: 20101020
  Transmission Date: 20110411
  Serious: No
  Sender: FDA-Public Use
  Company Number: US-PFIZER INC-2010134194

PATIENT
  Sex: Female

DRUGS (1)
  1. SYNAREL [Suspect]
     Indication: PRECOCIOUS PUBERTY
     Dosage: UNK
     Dates: start: 20050101, end: 20090101

REACTIONS (1)
  - IMPLANT SITE REACTION [None]
